FAERS Safety Report 8465103-3 (Version None)
Quarter: 2012Q2

REPORT INFORMATION
  Report Type: 
  Country: None (occurrence: None)
  Receive Date: 20120626
  Receipt Date: 20120618
  Transmission Date: 20120825
  Serious: Yes (Hospitalization)
  Sender: FDA-Public Use
  Company Number: US-BAYER-2012-061021

PATIENT
  Age: 19 Year
  Sex: Female
  Weight: 52.1 kg

DRUGS (3)
  1. YAZ [Suspect]
  2. YASMIN [Suspect]
  3. BACTRIM DS [Concomitant]
     Indication: CELLULITIS
     Dosage: 800 MG, BID FOR 10 DAYS
     Route: 048

REACTIONS (1)
  - DEEP VEIN THROMBOSIS [None]
